FAERS Safety Report 18685291 (Version 1)
Quarter: 2020Q4

REPORT INFORMATION
  Report Type: Report from Study
  Country: None (occurrence: DE)
  Receive Date: 20201230
  Receipt Date: 20201230
  Transmission Date: 20210114
  Serious: Yes (Hospitalization)
  Sender: FDA-Public Use
  Company Number: DE-ABBVIE-20K-062-3710461-00

PATIENT
  Age: 66 Year
  Sex: Male

DRUGS (2)
  1. HUMIRA [Suspect]
     Active Substance: ADALIMUMAB
     Indication: COLITIS ULCERATIVE
     Route: 058
     Dates: start: 20180709, end: 202002
  2. JOD [Concomitant]
     Indication: HYPOTHYROIDISM
     Route: 048
     Dates: start: 2015

REACTIONS (4)
  - Arrhythmia [Recovered/Resolved]
  - Organ failure [Recovered/Resolved]
  - Renal failure [Recovered/Resolved]
  - Pyrexia [Recovered/Resolved]

NARRATIVE: CASE EVENT DATE: 201807
